FAERS Safety Report 9236621 (Version 1)
Quarter: 2013Q2

REPORT INFORMATION
  Report Type: Report from Study
  Country: US (occurrence: US)
  Receive Date: 20130417
  Receipt Date: 20130417
  Transmission Date: 20140414
  Serious: Yes (Other)
  Sender: FDA-Public Use
  Company Number: US-ROCHE-1207682

PATIENT
  Age: 65 Year
  Sex: Female
  Weight: 58.38 kg

DRUGS (6)
  1. XELODA [Suspect]
     Indication: BREAST CANCER METASTATIC
     Dosage: 500 MG 3 PILLS IN MORNING AND 3 PILLS IN EVENING.
     Route: 048
     Dates: start: 20120324
  2. XGEVA [Concomitant]
     Route: 058
     Dates: start: 20120320
  3. CALTRATE WITH VITAMIN D [Concomitant]
     Route: 048
  4. DIPHENHYDRAMINE HCL [Concomitant]
     Route: 065
  5. HYDROCORTISONE SODIUM SUCCINATE [Concomitant]
     Route: 065
  6. METHYLPREDNISOLONE SODIUM SUCCINATE [Concomitant]
     Route: 065

REACTIONS (13)
  - Abdominal discomfort [Recovered/Resolved]
  - Dysgeusia [Recovered/Resolved]
  - Nail disorder [Not Recovered/Not Resolved]
  - Alopecia [Not Recovered/Not Resolved]
  - Erythema [Not Recovered/Not Resolved]
  - Hypoaesthesia [Not Recovered/Not Resolved]
  - Skin exfoliation [Not Recovered/Not Resolved]
  - Joint crepitation [Not Recovered/Not Resolved]
  - Erythema [Not Recovered/Not Resolved]
  - Hypoaesthesia [Not Recovered/Not Resolved]
  - Skin exfoliation [Not Recovered/Not Resolved]
  - Ill-defined disorder [Not Recovered/Not Resolved]
  - Cholelithiasis [Unknown]
